FAERS Safety Report 20564805 (Version 1)
Quarter: 2022Q1

REPORT INFORMATION
  Report Type: Spontaneous
  Country: US (occurrence: US)
  Receive Date: 20220308
  Receipt Date: 20220308
  Transmission Date: 20220423
  Serious: No
  Sender: FDA-Public Use
  Company Number: US-ALLERGAN-2134301US

PATIENT
  Sex: Female

DRUGS (1)
  1. ESTRADIOL [Suspect]
     Active Substance: ESTRADIOL
     Indication: Atrophic vulvovaginitis

REACTIONS (4)
  - Atrophic vulvovaginitis [Unknown]
  - Product odour abnormal [Unknown]
  - Product quality issue [Unknown]
  - Product physical consistency issue [Unknown]
